FAERS Safety Report 8059579-3 (Version None)
Quarter: 2012Q1

REPORT INFORMATION
  Report Type: 
  Country: None (occurrence: None)
  Receive Date: 20120120
  Receipt Date: 20120118
  Transmission Date: 20120608
  Serious: Yes (Other)
  Sender: FDA-Public Use
  Company Number: JP-CELGENEUS-087-21880-11053434

PATIENT
  Sex: Female

DRUGS (12)
  1. ONEALFA [Concomitant]
     Dosage: 1 MICROGRAM
     Route: 048
     Dates: start: 20080101
  2. PROTECADIN [Concomitant]
     Dosage: 20 MILLIGRAM
     Route: 048
     Dates: start: 20080101
  3. REVLIMID [Suspect]
     Indication: MULTIPLE MYELOMA
     Dosage: 25 MILLIGRAM
     Route: 048
     Dates: start: 20100823, end: 20100912
  4. MAGMITT [Concomitant]
     Dosage: 990 MILLIGRAM
     Route: 048
     Dates: start: 20080101
  5. ETODOLAC [Concomitant]
     Dosage: 400 MILLIGRAM
     Route: 048
     Dates: start: 20080101
  6. MUCOSTA [Concomitant]
     Dosage: 200 MILLIGRAM
     Route: 048
     Dates: start: 20080101
  7. DEXAMETHASONE ACETATE [Suspect]
     Indication: MULTIPLE MYELOMA
     Dosage: 40 MILLIGRAM
     Route: 048
     Dates: start: 20100823, end: 20100825
  8. CINAL [Concomitant]
  9. PRAVASTATIN SODIUM [Concomitant]
     Indication: HYPERLIPIDAEMIA
     Dosage: 5 MILLIGRAM
     Route: 048
     Dates: start: 20080101
  10. CINAL [Concomitant]
     Dosage: 2 GRAM
     Route: 048
     Dates: start: 20080101
  11. LASIX [Concomitant]
     Indication: HYPERTENSION
     Dosage: 40 MILLIGRAM
     Route: 048
     Dates: start: 20080101
  12. ASPIRIN [Concomitant]
     Indication: PROPHYLAXIS
     Dosage: 100 MILLIGRAM
     Route: 048
     Dates: start: 20080101

REACTIONS (1)
  - DEMENTIA ALZHEIMER'S TYPE [None]
